FAERS Safety Report 16305677 (Version 3)
Quarter: 2022Q2

REPORT INFORMATION
  Report Type: Spontaneous
  Country: US (occurrence: None)
  Receive Date: 20190513
  Receipt Date: 20220401
  Transmission Date: 20220721
  Serious: Yes (Other)
  Sender: FDA-Public Use
  Company Number: 2019SE64151

PATIENT
  Age: 44 Year
  Sex: Female

DRUGS (39)
  1. NEXIUM [Suspect]
     Active Substance: ESOMEPRAZOLE MAGNESIUM
     Indication: Gastrooesophageal reflux disease
     Route: 048
     Dates: start: 2001, end: 2017
  2. NEXIUM 24HR [Suspect]
     Active Substance: ESOMEPRAZOLE MAGNESIUM
     Route: 048
  3. PRILOSEC [Suspect]
     Active Substance: OMEPRAZOLE MAGNESIUM
     Indication: Gastrooesophageal reflux disease
     Route: 048
     Dates: start: 1991, end: 2017
  4. PRILOSEC [Suspect]
     Active Substance: OMEPRAZOLE MAGNESIUM
     Indication: Gastrooesophageal reflux disease
     Route: 065
     Dates: start: 2017
  5. PRILOSEC OTC [Suspect]
     Active Substance: OMEPRAZOLE MAGNESIUM
     Route: 048
  6. PREVACID [Suspect]
     Active Substance: LANSOPRAZOLE
     Indication: Gastrooesophageal reflux disease
     Route: 065
     Dates: start: 1995, end: 2017
  7. PREVACID 24 HR [Suspect]
     Active Substance: LANSOPRAZOLE
     Route: 065
  8. LISINOPRIL [Concomitant]
     Active Substance: LISINOPRIL
     Indication: Blood pressure measurement
  9. PRAVASTATIN [Concomitant]
     Active Substance: PRAVASTATIN
     Indication: Blood cholesterol
  10. ASPIRIN [Concomitant]
     Active Substance: ASPIRIN
     Indication: Anticoagulant therapy
     Dates: start: 2008
  11. HYDROCODONE [Concomitant]
     Active Substance: HYDROCODONE
  12. METOPROLOL SUCCINATE [Concomitant]
     Active Substance: METOPROLOL SUCCINATE
  13. POTASSIUM CHLORIDE [Concomitant]
     Active Substance: POTASSIUM CHLORIDE
  14. VITAMIN D [Concomitant]
     Active Substance: VITAMIN D NOS
  15. AMOXICILLIN [Concomitant]
     Active Substance: AMOXICILLIN
  16. ONDANSETRON [Concomitant]
     Active Substance: ONDANSETRON
  17. CHANTIX [Concomitant]
     Active Substance: VARENICLINE TARTRATE
  18. NIFEDIPINE [Concomitant]
     Active Substance: NIFEDIPINE
  19. ATORVASTATIN [Concomitant]
     Active Substance: ATORVASTATIN
  20. SPIRONOLACTONE [Concomitant]
     Active Substance: SPIRONOLACTONE
  21. TRAMADOL [Concomitant]
     Active Substance: TRAMADOL
  22. PENICILLIN [Concomitant]
     Active Substance: PENICILLIN
  23. PREDNISONE [Concomitant]
     Active Substance: PREDNISONE
  24. BENZONATATE [Concomitant]
     Active Substance: BENZONATATE
  25. LIDOCAINE [Concomitant]
     Active Substance: LIDOCAINE
  26. ACETAMINOPHEN [Concomitant]
     Active Substance: ACETAMINOPHEN
  27. TRIAMTERENE [Concomitant]
     Active Substance: TRIAMTERENE
  28. AMLODIPINE BESYLATE [Concomitant]
     Active Substance: AMLODIPINE BESYLATE
  29. HYDROCHLOROTHIAZIDE [Concomitant]
     Active Substance: HYDROCHLOROTHIAZIDE
  30. NAPROXEN [Concomitant]
     Active Substance: NAPROXEN
  31. CITALOPRAM [Concomitant]
     Active Substance: CITALOPRAM HYDROBROMIDE
  32. SODIUM CHLORIDE [Concomitant]
     Active Substance: SODIUM CHLORIDE
  33. IOPAMIDOL [Concomitant]
     Active Substance: IOPAMIDOL
  34. XANAX [Concomitant]
     Active Substance: ALPRAZOLAM
  35. BUPIVACAINE [Concomitant]
     Active Substance: BUPIVACAINE
  36. AMITRIPTYLINE [Concomitant]
     Active Substance: AMITRIPTYLINE
  37. ERYTHROMYCIN [Concomitant]
     Active Substance: ERYTHROMYCIN
  38. VARENICLINE [Concomitant]
     Active Substance: VARENICLINE
  39. ALPRAZOLAM [Concomitant]
     Active Substance: ALPRAZOLAM

REACTIONS (4)
  - Chronic kidney disease [Not Recovered/Not Resolved]
  - Acute kidney injury [Unknown]
  - Renal failure [Unknown]
  - Gastrooesophageal reflux disease [Not Recovered/Not Resolved]

NARRATIVE: CASE EVENT DATE: 20150101
